FAERS Safety Report 20290333 (Version 2)
Quarter: 2022Q1

REPORT INFORMATION
  Report Type: Spontaneous
  Country: CN (occurrence: None)
  Receive Date: 20220104
  Receipt Date: 20220110
  Transmission Date: 20220423
  Serious: Yes (Death, Other)
  Sender: FDA-Public Use
  Company Number: 2022A001204

PATIENT
  Sex: Male
  Weight: 53 kg

DRUGS (2)
  1. TAGRISSO [Suspect]
     Active Substance: OSIMERTINIB
     Dosage: ONE TABLET PER DAY FOR THE FIRST 15 DAYS
     Route: 048
  2. TAGRISSO [Suspect]
     Active Substance: OSIMERTINIB
     Dosage: HALF A TABLET PER DAY FROM THE 16TH
     Route: 048

REACTIONS (2)
  - Cardiac failure [Fatal]
  - Myocardial infarction [Fatal]
